FAERS Safety Report 20379823 (Version 1)
Quarter: 2022Q1

REPORT INFORMATION
  Report Type: Spontaneous
  Country: US (occurrence: None)
  Receive Date: 20220126
  Receipt Date: 20220126
  Transmission Date: 20220424
  Serious: Yes (Hospitalization)
  Sender: FDA-Public Use
  Company Number: None

PATIENT
  Age: 66 Year
  Sex: Female
  Weight: 77.7 kg

DRUGS (18)
  1. CASIRIVIMAB [Suspect]
     Active Substance: CASIRIVIMAB
     Indication: COVID-19
     Dosage: FREQUENCY : ONCE;?
     Route: 042
     Dates: start: 20211013, end: 20211013
  2. IMDEVIMAB [Suspect]
     Active Substance: IMDEVIMAB
     Indication: COVID-19
     Dosage: OTHER FREQUENCY : ONCE;?
     Route: 042
     Dates: start: 20211013, end: 20211013
  3. AZITHROMYCIN [Concomitant]
     Active Substance: AZITHROMYCIN
     Dates: start: 20211013, end: 20211016
  4. CEFTRIAXONE [Concomitant]
     Active Substance: CEFTRIAXONE
     Dates: end: 20211016
  5. DEXAMETHASONE [Concomitant]
     Active Substance: DEXAMETHASONE
     Dates: start: 20211013, end: 20211016
  6. REMDESIVIR [Concomitant]
     Active Substance: REMDESIVIR
     Dates: end: 20211016
  7. COMBIVENT [Concomitant]
     Active Substance: ALBUTEROL SULFATE\IPRATROPIUM BROMIDE
     Dates: start: 20211013, end: 20211016
  8. ENOXAPARIN [Concomitant]
     Active Substance: ENOXAPARIN
     Dates: start: 20211013, end: 20211016
  9. CHOLECALCIFEROL [Concomitant]
     Active Substance: CHOLECALCIFEROL
     Dates: end: 20211016
  10. ZINC [Concomitant]
     Active Substance: ZINC
     Dates: end: 20211016
  11. Asorbic Acid [Concomitant]
     Dates: end: 20211016
  12. FUROSEMIDE [Concomitant]
     Active Substance: FUROSEMIDE
     Dates: end: 20211016
  13. ACETAMINOPHEN [Concomitant]
     Active Substance: ACETAMINOPHEN
     Dates: start: 20211013, end: 20211016
  14. Benzonatate (Tessalon) [Concomitant]
     Dates: start: 20211013, end: 20211016
  15. NS 0.9% Bolus [Concomitant]
     Dates: start: 20211013, end: 20211014
  16. AZITHROMYCIN [Concomitant]
     Active Substance: AZITHROMYCIN
     Dates: end: 20211018
  17. DEXAMETHASONE [Concomitant]
     Active Substance: DEXAMETHASONE
     Dates: end: 20211022
  18. COMBIVENT [Concomitant]
     Active Substance: ALBUTEROL SULFATE\IPRATROPIUM BROMIDE

REACTIONS (10)
  - Hyponatraemia [None]
  - Acute kidney injury [None]
  - Dehydration [None]
  - Cholelithiasis [None]
  - Dyspnoea [None]
  - Chest discomfort [None]
  - Cough [None]
  - Asthenia [None]
  - Pain [None]
  - Diarrhoea [None]

NARRATIVE: CASE EVENT DATE: 20211013
